FAERS Safety Report 8636854 (Version 2)
Quarter: 2019Q4

REPORT INFORMATION
  Report Type: Spontaneous
  Country: US (occurrence: US)
  Receive Date: 20120626
  Receipt Date: 20191219
  Transmission Date: 20200122
  Serious: Yes (Other)
  Sender: FDA-Public Use
  Company Number: US-UCBSA-060057

PATIENT

DRUGS (1)
  1. CIMZIA [Suspect]
     Active Substance: CERTOLIZUMAB PEGOL
     Dosage: ONE DOSE OF CIMZIA BUT NO MORE

REACTIONS (3)
  - Urticaria [Unknown]
  - Mouth swelling [Unknown]
  - Skin lesion [Unknown]
